FAERS Safety Report 20429621 (Version 1)
Quarter: 2022Q1

REPORT INFORMATION
  Report Type: Report from Study
  Country: FR (occurrence: FR)
  Receive Date: 20220204
  Receipt Date: 20220204
  Transmission Date: 20220423
  Serious: Yes (Hospitalization)
  Sender: FDA-Public Use
  Company Number: FR-SERVIER-S19007523

PATIENT

DRUGS (10)
  1. ONCASPAR [Suspect]
     Active Substance: PEGASPARGASE
     Indication: Acute lymphocytic leukaemia
     Dosage: 1800 IU, ON D12
     Route: 042
     Dates: start: 20190524, end: 20190524
  2. THIOGUANINE ANHYDROUS [Suspect]
     Active Substance: THIOGUANINE ANHYDROUS
     Indication: Acute lymphocytic leukaemia
     Dosage: 40 MG, ON D29, D42
     Route: 048
     Dates: start: 20190621, end: 20190704
  3. CYCLOPHOSPHAMIDE [Suspect]
     Active Substance: CYCLOPHOSPHAMIDE
     Indication: Acute lymphocytic leukaemia
     Dosage: 720 MG, ON D29
     Route: 042
     Dates: start: 20190621, end: 20190621
  4. CYTARABINE [Suspect]
     Active Substance: CYTARABINE
     Indication: Acute lymphocytic leukaemia
     Dosage: 30 MG, ON D4, D31
     Route: 037
     Dates: start: 20190524, end: 20190624
  5. CYTARABINE [Suspect]
     Active Substance: CYTARABINE
     Dosage: 54 MG, ON D31, D34, D38, D41
     Route: 042
     Dates: start: 20190624, end: 20190704
  6. DOXORUBICIN [Suspect]
     Active Substance: DOXORUBICIN
     Indication: Acute lymphocytic leukaemia
     Dosage: 18 MG, ON D1, D8, D15
     Route: 042
     Dates: start: 20190521, end: 20190528
  7. VINCRISTINE [Suspect]
     Active Substance: VINCRISTINE
     Indication: Acute lymphocytic leukaemia
     Dosage: 1.1 MG ON D1, D8, D15
     Route: 042
     Dates: start: 20190521, end: 20190528
  8. DEXAMETHASONE [Suspect]
     Active Substance: DEXAMETHASONE
     Indication: Acute lymphocytic leukaemia
     Dosage: 7.5 MG QD FROM D1 TO D7 AND FROM D15 TO D21
     Route: 048
     Dates: start: 20190521, end: 20190610
  9. TN UNSPECIFIED [Concomitant]
     Indication: Acute lymphocytic leukaemia
     Dosage: 15 MG, ON D4, D31
     Route: 042
     Dates: start: 20190524, end: 20190624
  10. TN UNSPECIFIED [Concomitant]
     Indication: Acute lymphocytic leukaemia
     Dosage: 12 MG, ON D4, D31
     Route: 037
     Dates: start: 20190524, end: 20190624

REACTIONS (1)
  - Venoocclusive disease [Recovering/Resolving]

NARRATIVE: CASE EVENT DATE: 20190705
